FAERS Safety Report 4969318-8 (Version None)
Quarter: 2006Q2

REPORT INFORMATION
  Report Type: 
  Country: None (occurrence: None)
  Receive Date: 20060411
  Receipt Date: 20060309
  Transmission Date: 20061013
  Serious: Yes (Hospitalization)
  Sender: FDA-Public Use
  Company Number: 2006AP01131

PATIENT
  Age: 7 Month
  Sex: Male
  Weight: 11.5 kg

DRUGS (4)
  1. MEROPEN [Suspect]
     Indication: MENINGITIS BACTERIAL
     Route: 041
     Dates: start: 20050801, end: 20050821
  2. LIASOPHIN [Suspect]
     Indication: MENINGITIS BACTERIAL
     Route: 041
     Dates: start: 20050731, end: 20050819
  3. AMIKACIN SULPHATE [Concomitant]
     Indication: MENINGITIS BACTERIAL
     Route: 041
     Dates: start: 20050731, end: 20050731
  4. DEXART [Concomitant]
     Indication: MENINGITIS BACTERIAL
     Route: 041
     Dates: start: 20050801, end: 20050803

REACTIONS (4)
  - CYTOMEGALOVIRUS INFECTION [None]
  - DRUG ERUPTION [None]
  - DRUG HYPERSENSITIVITY [None]
  - HEPATOSPLENOMEGALY [None]
